FAERS Safety Report 7581206-X (Version None)
Quarter: 2011Q2

REPORT INFORMATION
  Report Type: 
  Country: None (occurrence: None)
  Receive Date: 20110629
  Receipt Date: 20110621
  Transmission Date: 20111010
  Serious: Yes (Death)
  Sender: FDA-Public Use
  Company Number: US-PFIZER INC-US-WYE-H13690710

PATIENT
  Age: 51 Year
  Sex: Male

DRUGS (6)
  1. QUETIAPINE [Suspect]
     Dosage: UNSPECIFIED CHRONIC EXPOSURE, CONTINUOUS, OR REPEATED EXPOSURE OCCURRING OVER GREATER THEN 8 HOURS
     Route: 048
     Dates: start: 20080101
  2. ZOLPIDEM [Suspect]
     Dosage: UNSPECIFIED CHRONIC EXPOSURE, CONTINUOUS, OR REPEATED EXPOSURE OCCURRING OVER GREATER THEN 8 HOURS
     Route: 048
     Dates: start: 20080101
  3. CORDARONE [Suspect]
     Dosage: UNSPECIFIED CHRONIC EXPOSURE, CONTINUOUS, OR REPEATED EXPOSURE OCCURRING OVER GREATER THEN 8 HOURS
     Route: 048
     Dates: start: 20080101
  4. TRAZODONE HCL [Suspect]
     Dosage: UNSPECIFIED CHRONIC EXPOSURE, CONTINUOUS, OR REPEATED EXPOSURE OCCURRING OVER GREATER THEN 8 HOURS
     Route: 048
     Dates: start: 20080101
  5. OXYCODONE HCL [Suspect]
     Dosage: UNSPECIFIED CHRONIC EXPOSURE, CONTINUOUS, OR REPEATED EXPOSURE OCCURRING OVER GREATER THEN 8 HOURS
     Route: 048
     Dates: start: 20080101
  6. OXYCET [Suspect]
     Dosage: UNSPECIFIED CHRONIC EXPOSURE, CONTINUOUS, OR REPEATED EXPOSURE OCCURRING OVER GREATER THEN 8 HOURS
     Route: 048
     Dates: start: 20080101

REACTIONS (1)
  - COMPLETED SUICIDE [None]
